FAERS Safety Report 4651595-4 (Version None)
Quarter: 2005Q2

REPORT INFORMATION
  Report Type: 
  Country: None (occurrence: None)
  Receive Date: 20050502
  Receipt Date: 20050420
  Transmission Date: 20051028
  Serious: Yes (Life-Threatening)
  Sender: FDA-Public Use
  Company Number: S05-USA-02168-01

PATIENT

DRUGS (1)
  1. NAMENDA [Suspect]
     Dosage: 2.5 MG QD PO
     Route: 048

REACTIONS (2)
  - BRADYCARDIA [None]
  - CARDIAC ARREST [None]
